FAERS Safety Report 5710382-6 (Version None)
Quarter: 2008Q2

REPORT INFORMATION
  Report Type: 
  Country: None (occurrence: None)
  Receive Date: 20080418
  Receipt Date: 20080411
  Transmission Date: 20081010
  Serious: Yes (Hospitalization)
  Sender: FDA-Public Use
  Company Number: FR-MERCK-0804FRA00075

PATIENT
  Age: 61 Year
  Sex: Male

DRUGS (5)
  1. COZAAR [Suspect]
     Indication: HYPERTENSION
     Route: 048
     Dates: end: 20080301
  2. COZAAR [Suspect]
     Route: 048
     Dates: start: 20080301
  3. METHOCARBAMOL [Suspect]
     Route: 048
  4. METFORMIN PAMOATE [Concomitant]
     Indication: TYPE 2 DIABETES MELLITUS
     Route: 048
  5. KETOPROFEN [Concomitant]
     Route: 065

REACTIONS (4)
  - ABDOMINAL PAIN [None]
  - HYPERHIDROSIS [None]
  - LOSS OF CONSCIOUSNESS [None]
  - MALAISE [None]
